FAERS Safety Report 9076722 (Version 1)
Quarter: 2013Q1

REPORT INFORMATION
  Report Type: Report from Study
  Country: US (occurrence: US)
  Receive Date: 20130129
  Receipt Date: 20130129
  Transmission Date: 20140127
  Serious: No
  Sender: FDA-Public Use
  Company Number: US-ABBOTT-12P-163-0936105-00

PATIENT
  Age: 40 None
  Sex: Male

DRUGS (9)
  1. HUMIRA 40 MG/0.8 ML PEN [Suspect]
     Indication: POUCHITIS
     Dates: start: 20120408, end: 20120408
  2. HUMIRA 40 MG/0.8 ML PEN [Suspect]
     Indication: COLITIS
     Dosage: LOADING DOSE
     Dates: start: 201206
  3. HUMIRA 40 MG/0.8 ML PEN [Suspect]
     Indication: CROHN^S DISEASE
     Dates: start: 201206
  4. TRICOR [Concomitant]
     Indication: PRODUCT USED FOR UNKNOWN INDICATION
  5. PAXIL [Concomitant]
     Indication: PRODUCT USED FOR UNKNOWN INDICATION
  6. ZEGERID [Concomitant]
     Indication: PRODUCT USED FOR UNKNOWN INDICATION
  7. IRON [Concomitant]
     Indication: SUPPLEMENTATION THERAPY
     Dosage: WITH VIT C
  8. VIT C [Concomitant]
     Indication: PRODUCT USED FOR UNKNOWN INDICATION
  9. FISH OIL [Concomitant]
     Indication: PRODUCT USED FOR UNKNOWN INDICATION

REACTIONS (7)
  - Pyrexia [Recovering/Resolving]
  - Candida infection [Not Recovered/Not Resolved]
  - Chills [Recovering/Resolving]
  - Pain [Recovering/Resolving]
  - Pouchitis [Recovering/Resolving]
  - Infection [Unknown]
  - Procedural site reaction [Recovering/Resolving]
